FAERS Safety Report 8885113 (Version 1)
Quarter: 2012Q4

REPORT INFORMATION
  Report Type: 
  Country: US (occurrence: US)
  Receive Date: 20121105
  Receipt Date: 20121105
  Transmission Date: 20130627
  Serious: No
  Sender: FDA-Public Use
  Company Number: US-BIOGENIDEC-2012BI048326

PATIENT
  Sex: Female

DRUGS (1)
  1. TYSABRI [Suspect]
     Indication: MULTIPLE SCLEROSIS
     Route: 042
     Dates: start: 20100621, end: 20100818

REACTIONS (5)
  - Blood urine present [Unknown]
  - Blood count abnormal [Recovered/Resolved]
  - Cardiac disorder [Recovered/Resolved]
  - Rash [Unknown]
  - Drug ineffective [Recovered/Resolved]
